FAERS Safety Report 17349050 (Version 1)
Quarter: 2020Q1

REPORT INFORMATION
  Report Type: Report from Study
  Country: US (occurrence: US)
  Receive Date: 20200129
  Receipt Date: 20200129
  Transmission Date: 20200409
  Serious: No
  Sender: FDA-Public Use
  Company Number: US-EXELIXIS-CABO-19025031

PATIENT
  Age: 72 Year
  Sex: Male

DRUGS (2)
  1. CABOMETYX [Suspect]
     Active Substance: CABOZANTINIB S-MALATE
     Indication: RENAL CANCER
     Dosage: 60 MG, QD (2 PM WITHOUT FOOD)
     Dates: start: 20190910, end: 20191109
  2. CABOMETYX [Suspect]
     Active Substance: CABOZANTINIB S-MALATE
     Dosage: 60 MG, QD (2 PM WITHOUT FOOD)
     Dates: start: 20191126

REACTIONS (9)
  - Gastrooesophageal reflux disease [Recovering/Resolving]
  - Blood pressure increased [Recovered/Resolved]
  - Gait disturbance [Recovered/Resolved]
  - Sleep apnoea syndrome [Unknown]
  - Dyspepsia [Recovered/Resolved]
  - Asthenia [Unknown]
  - Decreased appetite [Recovered/Resolved]
  - Nausea [Recovered/Resolved]
  - Fatigue [Not Recovered/Not Resolved]

NARRATIVE: CASE EVENT DATE: 201909
